FAERS Safety Report 15726930 (Version 4)
Quarter: 2019Q1

REPORT INFORMATION
  Report Type: Spontaneous
  Country: PT (occurrence: PT)
  Receive Date: 20181217
  Receipt Date: 20190320
  Transmission Date: 20190417
  Serious: Yes (Disabling)
  Sender: FDA-Public Use
  Company Number: PT-009507513-1812PRT004946

PATIENT
  Age: 23 Year
  Sex: Female

DRUGS (2)
  1. ETONOGESTREL IMPLANT- UNKNOWN [Suspect]
     Active Substance: ETONOGESTREL
     Dosage: UNK DOSAGE FORM
     Route: 059
     Dates: start: 201504, end: 201804
  2. IMPLANON [Suspect]
     Active Substance: ETONOGESTREL
     Indication: CONTRACEPTION
     Dosage: 1 DOSAGE FORM
     Route: 059
     Dates: start: 201804

REACTIONS (5)
  - Dyspareunia [Not Recovered/Not Resolved]
  - Menorrhagia [Recovered/Resolved]
  - Headache [Recovered/Resolved]
  - Ovarian cyst [Recovered/Resolved]
  - Abdominal pain [Recovered/Resolved]

NARRATIVE: CASE EVENT DATE: 2018
